FAERS Safety Report 6072811-0 (Version None)
Quarter: 2009Q1

REPORT INFORMATION
  Report Type: 
  Country: None (occurrence: None)
  Receive Date: 20090210
  Receipt Date: 20090203
  Transmission Date: 20090719
  Serious: Yes (Hospitalization)
  Sender: FDA-Public Use
  Company Number: JP-GENENTECH-276750

PATIENT

DRUGS (2)
  1. RITUXAN [Suspect]
     Indication: B-CELL LYMPHOMA
     Dosage: 250 MG/M2, UNK
     Route: 065
  2. YTTRIUM-90 IBRITUMOMAB TIUXETAN [Concomitant]
     Indication: B-CELL LYMPHOMA
     Route: 042

REACTIONS (1)
  - BLOOD BILIRUBIN INCREASED [None]
